FAERS Safety Report 4737046-X (Version None)
Quarter: 2005Q3

REPORT INFORMATION
  Report Type: 
  Country: None (occurrence: None)
  Receive Date: 20050808
  Receipt Date: 20050801
  Transmission Date: 20060218
  Serious: Yes (Hospitalization)
  Sender: FDA-Public Use
  Company Number: US-BRISTOL-MYERS SQUIBB COMPANY-13058565

PATIENT
  Age: 56 Year
  Sex: Male
  Weight: 115 kg

DRUGS (3)
  1. CETUXIMAB [Suspect]
     Indication: NEOPLASM MALIGNANT
     Dosage: 605 MG ADMINISTERED THIS COURSE/WAS TO RECEIVE CETUXIMAB DOSE ON 26-JUL-2005.
     Dates: start: 20050719, end: 20050719
  2. CISPLATIN [Suspect]
     Indication: NEOPLASM MALIGNANT
     Dosage: 0 MG TOTAL DOSE ADMINISTERED THIS COURSE.
     Dates: start: 20050712, end: 20050712
  3. RADIATION THERAPY [Suspect]
     Indication: NEOPLASM MALIGNANT

REACTIONS (1)
  - THROMBOSIS [None]
